FAERS Safety Report 4336907-3 (Version None)
Quarter: 2004Q2

REPORT INFORMATION
  Report Type: 
  Country: None (occurrence: None)
  Receive Date: 20040412
  Receipt Date: 20040405
  Transmission Date: 20050107
  Serious: Yes (Hospitalization)
  Sender: FDA-Public Use
  Company Number: IT-MERCK-0404ITA00009

PATIENT
  Age: 85 Year
  Sex: Male

DRUGS (2)
  1. GLYBURIDE AND METFORMIN HYDROCHLORIDE [Suspect]
     Route: 048
     Dates: start: 19990101, end: 20040403
  2. ZOCOR [Suspect]
     Route: 048
     Dates: start: 20020201, end: 20040403

REACTIONS (3)
  - HYPOGLYCAEMIA [None]
  - LACTIC ACIDOSIS [None]
  - RHABDOMYOLYSIS [None]
